FAERS Safety Report 7186730-X (Version None)
Quarter: 2010Q4

REPORT INFORMATION
  Report Type: 
  Country: None (occurrence: None)
  Receive Date: 20101222
  Receipt Date: 20101217
  Transmission Date: 20110411
  Serious: Yes (Hospitalization)
  Sender: FDA-Public Use
  Company Number: FR-PFIZER INC-2010174218

PATIENT
  Sex: Female
  Weight: 2.13 kg

DRUGS (3)
  1. XANAX [Suspect]
     Dosage: 0.25 MG, 3X/DAY
     Route: 064
  2. XANAX [Suspect]
     Dosage: 0.25 MG, 6X/DAY
  3. ANAFRANIL [Suspect]
     Dosage: UNK
     Route: 064

REACTIONS (7)
  - AGITATION [None]
  - ANAEMIA [None]
  - DECREASED ACTIVITY [None]
  - DRUG EXPOSURE DURING PREGNANCY [None]
  - POOR SUCKING REFLEX [None]
  - RESPIRATORY DISTRESS [None]
  - VASODILATATION [None]
